FAERS Safety Report 6052789-6 (Version None)
Quarter: 2009Q1

REPORT INFORMATION
  Report Type: 
  Country: None (occurrence: None)
  Receive Date: 20090127
  Receipt Date: 20090121
  Transmission Date: 20090719
  Serious: Yes (Other)
  Sender: FDA-Public Use
  Company Number: US-JNJFOC-20090105723

PATIENT
  Sex: Female
  Weight: 49.9 kg

DRUGS (3)
  1. DURAGESIC-100 [Suspect]
     Indication: BACK PAIN
     Route: 062
  2. MAXZIDE [Concomitant]
     Indication: HYPERTENSION
     Dosage: 75-50 MG/1 DAY
     Route: 048
  3. INDERAL [Concomitant]
     Indication: CARDIAC DISORDER
     Route: 048

REACTIONS (9)
  - ABDOMINAL DISTENSION [None]
  - ARTHRITIS [None]
  - BODY HEIGHT DECREASED [None]
  - BURSITIS [None]
  - EATING DISORDER [None]
  - INAPPROPRIATE SCHEDULE OF DRUG ADMINISTRATION [None]
  - KYPHOSIS [None]
  - OSTEOPOROSIS [None]
  - VOMITING [None]
